FAERS Safety Report 25907115 (Version 1)
Quarter: 2025Q4

REPORT INFORMATION
  Report Type: Spontaneous
  Country: JP (occurrence: JP)
  Receive Date: 20251010
  Receipt Date: 20251010
  Transmission Date: 20260118
  Serious: Yes (Other)
  Sender: NOVO NORDISK
  Company Number: JP-NOVOPROD-1486380

PATIENT
  Sex: Female

DRUGS (3)
  1. TRESIBA [Suspect]
     Active Substance: INSULIN DEGLUDEC
     Indication: Type 1 diabetes mellitus
     Dosage: UNK
     Route: 058
  2. NOVORAPID [Suspect]
     Active Substance: INSULIN ASPART
     Dosage: 5.5 UT IN THE MORNING
     Route: 058
  3. NOVORAPID [Suspect]
     Active Substance: INSULIN ASPART
     Indication: Type 1 diabetes mellitus
     Dosage: UNK (6 UNITS IN THE MORNING) AND UNKNOWN DOSE IN THE AFTERNOON AND EVENING
     Route: 058

REACTIONS (4)
  - Vocal cord polyp [Unknown]
  - Injection site induration [Unknown]
  - Blood glucose abnormal [Unknown]
  - Incorrect dose administered [Unknown]
